FAERS Safety Report 18223712 (Version 2)
Quarter: 2021Q1

REPORT INFORMATION
  Report Type: Spontaneous
  Country: US (occurrence: US)
  Receive Date: 20200902
  Receipt Date: 20210217
  Transmission Date: 20210419
  Serious: No
  Sender: FDA-Public Use
  Company Number: US-MYLANLABS-2020M1075069

PATIENT
  Sex: Female

DRUGS (3)
  1. FORMOTEROL [Suspect]
     Active Substance: FORMOTEROL
     Indication: CHRONIC OBSTRUCTIVE PULMONARY DISEASE
     Dosage: 20 MICROGRAM, BID
     Route: 065
     Dates: start: 2015
  2. FORMOTEROL [Suspect]
     Active Substance: FORMOTEROL
     Dosage: 20 MICROGRAM, BID
     Dates: start: 20200727
  3. BUDESONIDE. [Concomitant]
     Active Substance: BUDESONIDE
     Dosage: 0.5 MG / 2 ML
     Dates: start: 20200715

REACTIONS (1)
  - Throat irritation [Recovered/Resolved]
